FAERS Safety Report 7542507-4 (Version None)
Quarter: 2011Q2

REPORT INFORMATION
  Report Type: 
  Country: None (occurrence: None)
  Receive Date: 20110524
  Receipt Date: 20101207
  Transmission Date: 20111010
  Serious: No
  Sender: FDA-Public Use
  Company Number: 015769

PATIENT
  Sex: Female

DRUGS (4)
  1. VITAMIN B-12 [Concomitant]
  2. CIMZIA [Suspect]
     Indication: CROHN'S DISEASE
     Dosage: 400 MG 1X/MONTH SUBCUTANEOUS
     Route: 058
     Dates: start: 20100128
  3. CENTRUM SILVER /01292501/ [Concomitant]
  4. SULFAZINE EC [Concomitant]

REACTIONS (3)
  - IMPAIRED WORK ABILITY [None]
  - SKIN INFECTION [None]
  - FATIGUE [None]
